FAERS Safety Report 8764848 (Version 3)
Quarter: 2013Q4

REPORT INFORMATION
  Report Type: Spontaneous
  Country: US (occurrence: US)
  Receive Date: 20120901
  Receipt Date: 20131101
  Transmission Date: 20140711
  Serious: No
  Sender: FDA-Public Use
  Company Number: US-009507513-1208USA008858

PATIENT
  Age: 23 Year
  Sex: Female
  Weight: 99.77 kg

DRUGS (2)
  1. IMPLANON [Suspect]
     Dosage: 1 ROD FOR 3 YEARS
     Route: 059
     Dates: start: 20090805, end: 20120816
  2. IMPLANON [Suspect]
     Dosage: UNK
     Dates: start: 20120816

REACTIONS (3)
  - Device breakage [Unknown]
  - Incorrect drug administration duration [Unknown]
  - No adverse event [Unknown]
